FAERS Safety Report 20581549 (Version 3)
Quarter: 2022Q3

REPORT INFORMATION
  Report Type: Report from Study
  Country: JP (occurrence: JP)
  Receive Date: 20220311
  Receipt Date: 20220711
  Transmission Date: 20221027
  Serious: Yes (Hospitalization)
  Sender: FDA-Public Use
  Company Number: JP-ASTELLAS-2022JP004043

PATIENT
  Age: 62 Year
  Sex: Male
  Weight: 58 kg

DRUGS (3)
  1. ENFORTUMAB VEDOTIN [Suspect]
     Active Substance: ENFORTUMAB VEDOTIN
     Indication: Bladder cancer
     Dosage: 1.25 MG/KG (85.75 MG), UNKNOWN FREQ.
     Route: 041
     Dates: start: 20220303, end: 20220303
  2. ENFORTUMAB VEDOTIN [Suspect]
     Active Substance: ENFORTUMAB VEDOTIN
     Dosage: 1.25 MG (85.75 MG), UNKNOWN FREQ.
     Route: 048
     Dates: start: 20220317, end: 20220519
  3. ENFORTUMAB VEDOTIN [Suspect]
     Active Substance: ENFORTUMAB VEDOTIN
     Dosage: 1.25 MG (85.75 MG), UNKNOWN FREQ.
     Dates: start: 20220616

REACTIONS (3)
  - Pyrexia [Recovering/Resolving]
  - Catheter site infection [Recovering/Resolving]
  - Inappropriate schedule of product administration [Unknown]

NARRATIVE: CASE EVENT DATE: 20220304
